FAERS Safety Report 5961033-7 (Version None)
Quarter: 2008Q4

REPORT INFORMATION
  Report Type: 
  Country: None (occurrence: None)
  Receive Date: 20081121
  Receipt Date: 20080818
  Transmission Date: 20090506
  Serious: No
  Sender: FDA-Public Use
  Company Number: A0739233A

PATIENT
  Age: 53 Year
  Sex: Male

DRUGS (4)
  1. LANOXIN [Suspect]
     Dosage: .125MG PER DAY
     Route: 048
     Dates: start: 19990101
  2. LISINOPRIL [Concomitant]
  3. ASPIRIN [Concomitant]
  4. GABAPENTIN [Concomitant]

REACTIONS (2)
  - RASH GENERALISED [None]
  - RASH PAPULAR [None]
